FAERS Safety Report 11242502 (Version 3)
Quarter: 2015Q3

REPORT INFORMATION
  Report Type: Report from Study
  Country: NL (occurrence: NL)
  Receive Date: 20150707
  Receipt Date: 20150821
  Transmission Date: 20151125
  Serious: Yes (Other)
  Sender: FDA-Public Use
  Company Number: NL-AMGEN-NLDSL2015065541

PATIENT
  Age: 63 Year
  Sex: Female

DRUGS (1)
  1. XGEVA [Suspect]
     Active Substance: DENOSUMAB
     Indication: PROPHYLAXIS
     Dosage: 1.7 ML(120MG), Q4WK
     Route: 058

REACTIONS (3)
  - Sense of oppression [Recovering/Resolving]
  - Pneumonia [Recovering/Resolving]
  - Terminal state [Unknown]

NARRATIVE: CASE EVENT DATE: 20150617
